FAERS Safety Report 21028740 (Version 1)
Quarter: 2022Q2

REPORT INFORMATION
  Report Type: Spontaneous
  Country: US (occurrence: None)
  Receive Date: 20220630
  Receipt Date: 20220630
  Transmission Date: 20220720
  Serious: Yes (Other)
  Sender: FDA-Public Use
  Company Number: None

PATIENT
  Age: 56 Year
  Sex: Male

DRUGS (2)
  1. TIXAGEVIMAB [Suspect]
     Active Substance: TIXAGEVIMAB
     Indication: COVID-19
     Dosage: FREQUENCY : ONCE;?
     Route: 030
     Dates: start: 20220606, end: 20220606
  2. CILGAVIMAB [Suspect]
     Active Substance: CILGAVIMAB
     Indication: COVID-19
     Dosage: OTHER FREQUENCY : ONCE;?
     Route: 030
     Dates: start: 20220606, end: 20220606

REACTIONS (4)
  - Throat irritation [None]
  - Chest discomfort [None]
  - Chest discomfort [None]
  - Nausea [None]

NARRATIVE: CASE EVENT DATE: 20220606
